FAERS Safety Report 5129592-4 (Version None)
Quarter: 2006Q4

REPORT INFORMATION
  Report Type: 
  Country: None (occurrence: None)
  Receive Date: 20061012
  Receipt Date: 20060927
  Transmission Date: 20070319
  Serious: Yes (Life-Threatening, Hospitalization)
  Sender: FDA-Public Use
  Company Number: 430045M06USA

PATIENT
  Age: 49 Year
  Sex: Female
  Weight: 49.4421 kg

DRUGS (2)
  1. NOVANTRONE [Suspect]
     Indication: MULTIPLE SCLEROSIS
  2. REBIF [Suspect]
     Indication: MULTIPLE SCLEROSIS
     Dosage: 44 MCG, 3 N 1 WEEKS, SUBCUTANEOUS
     Route: 058

REACTIONS (1)
  - ACUTE MYELOID LEUKAEMIA [None]
